FAERS Safety Report 11114830 (Version 1)
Quarter: 2015Q2

REPORT INFORMATION
  Report Type: Spontaneous
  Country: US (occurrence: None)
  Receive Date: 20150514
  Receipt Date: 20150514
  Transmission Date: 20150821
  Serious: Yes (Hospitalization)
  Sender: FDA-Public Use
  Company Number: None

PATIENT
  Age: 64 Year
  Sex: Female
  Weight: 70.31 kg

DRUGS (3)
  1. MULTIVITAMIN/MINERAL SUPPLEMENT [Concomitant]
  2. AMOXICILLIN AND CLAVULANATE POTASSIUM [Suspect]
     Active Substance: AMOXICILLIN\CLAVULANATE POTASSIUM
     Indication: SINUSITIS
     Route: 048
     Dates: start: 20150410, end: 20150417
  3. NATURE-THROID [Concomitant]
     Active Substance: THYROID, PORCINE

REACTIONS (11)
  - Headache [None]
  - Dyspepsia [None]
  - Cough [None]
  - Constipation [None]
  - Renal pain [None]
  - Food aversion [None]
  - Arthralgia [None]
  - Tremor [None]
  - Urticaria [None]
  - Asthenia [None]
  - Dysuria [None]

NARRATIVE: CASE EVENT DATE: 20150410
